FAERS Safety Report 17420443 (Version 1)
Quarter: 2020Q1

REPORT INFORMATION
  Report Type: Spontaneous
  Country: US (occurrence: US)
  Receive Date: 20200130
  Receipt Date: 20200130
  Transmission Date: 20200409
  Serious: Yes (Life-Threatening, Hospitalization)
  Sender: FDA-Public Use
  Company Number: None

PATIENT
  Age: 71 Year
  Sex: Male

DRUGS (2)
  1. FUROSEMIDE (FUROSEMIDE 40MG TAB) [Suspect]
     Active Substance: FUROSEMIDE
     Indication: HYPERTENSION
     Route: 048
     Dates: start: 20190814, end: 20191125
  2. FUROSEMIDE (FUROSEMIDE 40MG TAB) [Suspect]
     Active Substance: FUROSEMIDE
     Indication: FLUID RETENTION

REACTIONS (2)
  - Hypokalaemia [None]
  - Hypomagnesaemia [None]

NARRATIVE: CASE EVENT DATE: 20191115
